FAERS Safety Report 7303617-X (Version None)
Quarter: 2011Q1

REPORT INFORMATION
  Report Type: 
  Country: None (occurrence: None)
  Receive Date: 20110221
  Receipt Date: 20110211
  Transmission Date: 20110831
  Serious: Yes (Other)
  Sender: FDA-Public Use
  Company Number: PHFR2011GB01322

PATIENT
  Sex: Female
  Weight: 74 kg

DRUGS (2)
  1. CO-CODAMOL [Suspect]
     Dosage: UNK
  2. DICLOFENAC SODIUM [Suspect]
     Dosage: UNK
     Dates: start: 20110125

REACTIONS (1)
  - GASTROINTESTINAL DISORDER [None]
